FAERS Safety Report 4900105-2 (Version None)
Quarter: 2006Q1

REPORT INFORMATION
  Report Type: 
  Country: None (occurrence: None)
  Receive Date: 20060203
  Receipt Date: 20051128
  Transmission Date: 20060701
  Serious: Yes (Life-Threatening, Hospitalization, Other)
  Sender: FDA-Public Use
  Company Number: JP-AVENTIS-200513561JP

PATIENT
  Age: 26 Year
  Sex: Male

DRUGS (5)
  1. KETEK [Suspect]
     Indication: BRONCHITIS ACUTE
     Dosage: DOSE: 2 TABLETS/DAY
     Route: 048
     Dates: start: 20040526
  2. PA [Concomitant]
     Indication: BRONCHITIS ACUTE
     Dosage: DOSE: 2 TABLETS EACH
     Route: 048
     Dates: start: 20040526
  3. CALONAL [Concomitant]
     Indication: BRONCHITIS ACUTE
     Dosage: DOSE: 2 TABLETS EACH
     Route: 048
     Dates: start: 20040526
  4. DEPAS [Concomitant]
     Indication: DEPRESSION
  5. DOGMATYL [Concomitant]
     Indication: DEPRESSION

REACTIONS (1)
  - STEVENS-JOHNSON SYNDROME [None]
